FAERS Safety Report 11379846 (Version 1)
Quarter: 2015Q3

REPORT INFORMATION
  Report Type: Spontaneous
  Country: IL (occurrence: IL)
  Receive Date: 20150814
  Receipt Date: 20150814
  Transmission Date: 20151125
  Serious: Yes (Other)
  Sender: FDA-Public Use
  Company Number: IL-BAYER-2015-386225

PATIENT
  Age: 61 Year
  Sex: Male

DRUGS (3)
  1. XOFIGO [Suspect]
     Active Substance: RADIUM RA-223 DICHLORIDE
     Indication: PROSTATE CANCER STAGE IV
     Dosage: 50KBQ/KG
     Route: 042
     Dates: start: 20150617, end: 20150617
  2. VASODIP [Concomitant]
     Indication: HYPERTENSION
     Dosage: UNK
     Dates: start: 2012
  3. XOFIGO [Suspect]
     Active Substance: RADIUM RA-223 DICHLORIDE
     Indication: METASTASES TO BONE

REACTIONS (3)
  - Penile haemorrhage [None]
  - Haemorrhage urinary tract [None]
  - Thrombocytopenia [Not Recovered/Not Resolved]

NARRATIVE: CASE EVENT DATE: 2015
